FAERS Safety Report 5824472-0 (Version None)
Quarter: 2008Q3

REPORT INFORMATION
  Report Type: 
  Country: None (occurrence: None)
  Receive Date: 20080728
  Receipt Date: 20080722
  Transmission Date: 20090109
  Serious: Yes (Hospitalization)
  Sender: FDA-Public Use
  Company Number: B0530784A

PATIENT
  Sex: Male

DRUGS (2)
  1. WELLBUTRIN SR [Suspect]
     Route: 048
     Dates: start: 20080101, end: 20080101
  2. ALPRAZOLAM [Concomitant]
     Route: 065

REACTIONS (3)
  - FALL [None]
  - HEAD INJURY [None]
  - LOSS OF CONSCIOUSNESS [None]
